FAERS Safety Report 26002702 (Version 5)
Quarter: 2025Q4

REPORT INFORMATION
  Report Type: Report from Study
  Country: EU (occurrence: EU)
  Receive Date: 20251106
  Receipt Date: 20251202
  Transmission Date: 20260118
  Serious: Yes (Hospitalization)
  Sender: ABBVIE
  Company Number: EU-ABBVIE-6528439

PATIENT
  Age: 78 Year
  Sex: Female

DRUGS (2)
  1. FOSCARBIDOPA\FOSLEVODOPA [Suspect]
     Active Substance: FOSCARBIDOPA\FOSLEVODOPA
     Indication: Parkinson^s disease
     Dosage: LD: 0.60ML, CR: LOW: 0.25ML/H, BASE: 0.34ML/H, HIGH: 0.37ML/H, ED: 0.20ML, LAST ADMIN DATE: 2025
     Route: 058
     Dates: start: 20251029
  2. FOSCARBIDOPA\FOSLEVODOPA [Suspect]
     Active Substance: FOSCARBIDOPA\FOSLEVODOPA
     Dosage: FIRST ADMIN DATE: 2025?LD: 0.60ML CR: LOW: 0.25ML/H BASE: 0.35ML/H HIGH: 0.37ML/H ED: 0.20ML
     Route: 058

REACTIONS (20)
  - Intestinal ulcer [Recovering/Resolving]
  - Urinary tract infection [Recovered/Resolved]
  - Gastrointestinal haemorrhage [Recovered/Resolved]
  - Hypotension [Recovering/Resolving]
  - Constipation [Recovered/Resolved]
  - Back pain [Not Recovered/Not Resolved]
  - Hyperkinesia [Recovered/Resolved]
  - Haematocrit decreased [Recovered/Resolved]
  - Discomfort [Not Recovered/Not Resolved]
  - Pain in extremity [Unknown]
  - Headache [Unknown]
  - Pain [Unknown]
  - Neck pain [Not Recovered/Not Resolved]
  - Lethargy [Recovered/Resolved]
  - Nausea [Recovered/Resolved]
  - Vomiting [Recovered/Resolved]
  - Diarrhoea [Recovered/Resolved]
  - Blood electrolytes decreased [Recovering/Resolving]
  - Ischaemia [Not Recovered/Not Resolved]
  - Faeces hard [Unknown]

NARRATIVE: CASE EVENT DATE: 20250101
